FAERS Safety Report 5477321-7 (Version None)
Quarter: 2007Q3

REPORT INFORMATION
  Report Type: 
  Country: None (occurrence: None)
  Receive Date: 20070904
  Receipt Date: 20070716
  Transmission Date: 20080115
  Serious: No
  Sender: FDA-Public Use
  Company Number: PHEH2007US10026

PATIENT
  Sex: Female

DRUGS (1)
  1. ENABLEX [Suspect]
     Dosage: 7.5 MG, QD;  15 MG, QD

REACTIONS (1)
  - DRUG INEFFECTIVE [None]
